FAERS Safety Report 15961461 (Version 4)
Quarter: 2019Q3

REPORT INFORMATION
  Report Type: Spontaneous
  Country: US (occurrence: US)
  Receive Date: 20190214
  Receipt Date: 20190927
  Transmission Date: 20191004
  Serious: Yes (Death, Other)
  Sender: FDA-Public Use
  Company Number: US-ASTRAZENECA-2018SF21073

PATIENT
  Sex: Female

DRUGS (21)
  1. FUROSEMIDE. [Concomitant]
     Active Substance: FUROSEMIDE
  2. SPIRIVA [Concomitant]
     Active Substance: TIOTROPIUM BROMIDE MONOHYDRATE
  3. SYMBICORT [Concomitant]
     Active Substance: BUDESONIDE\FORMOTEROL FUMARATE DIHYDRATE
  4. LANTUS [Concomitant]
     Active Substance: INSULIN GLARGINE
  5. NEXIUM [Suspect]
     Active Substance: ESOMEPRAZOLE MAGNESIUM
     Indication: GASTROOESOPHAGEAL REFLUX DISEASE
     Route: 048
     Dates: start: 20100101, end: 20171207
  6. NEXIUM [Suspect]
     Active Substance: ESOMEPRAZOLE MAGNESIUM
     Indication: GASTROOESOPHAGEAL REFLUX DISEASE
     Route: 048
  7. ATORVASTATIN [Concomitant]
     Active Substance: ATORVASTATIN
  8. IMIPRAMINE [Concomitant]
     Active Substance: IMIPRAMINE
  9. LIDOCAINE. [Concomitant]
     Active Substance: LIDOCAINE
  10. AMLODIPINE [Concomitant]
     Active Substance: AMLODIPINE BESYLATE
  11. ASPIRIN. [Concomitant]
     Active Substance: ASPIRIN
  12. METOPROLOL TARTRATE. [Concomitant]
     Active Substance: METOPROLOL TARTRATE
  13. HYDRALAZINE [Concomitant]
     Active Substance: HYDRALAZINE HYDROCHLORIDE
  14. GLUCAGON. [Concomitant]
     Active Substance: GLUCAGON
  15. PREMARIN [Concomitant]
     Active Substance: ESTROGENS, CONJUGATED
  16. ATORVASTATIN [Concomitant]
     Active Substance: ATORVASTATIN
  17. PROAIR HFA [Concomitant]
     Active Substance: ALBUTEROL SULFATE
  18. FUROSEMIDE. [Concomitant]
     Active Substance: FUROSEMIDE
  19. DULOXETINE. [Concomitant]
     Active Substance: DULOXETINE
  20. FLUTICASONE. [Concomitant]
     Active Substance: FLUTICASONE
  21. LYRICA [Concomitant]
     Active Substance: PREGABALIN

REACTIONS (5)
  - Chronic kidney disease [Recovered/Resolved]
  - Cardiac failure [Fatal]
  - Respiratory failure [Fatal]
  - Renal injury [Unknown]
  - Tubulointerstitial nephritis [Recovered/Resolved]
